FAERS Safety Report 6263262-4 (Version None)
Quarter: 2009Q3

REPORT INFORMATION
  Report Type: 
  Country: None (occurrence: None)
  Receive Date: 20090710
  Receipt Date: 20090701
  Transmission Date: 20100115
  Serious: Yes (Other)
  Sender: FDA-Public Use
  Company Number: US-JNJFOC-20090400599

PATIENT
  Sex: Male
  Weight: 110.22 kg

DRUGS (4)
  1. REMICADE [Suspect]
     Indication: CROHN'S DISEASE
     Route: 042
  2. AZA [Concomitant]
     Indication: CROHN'S DISEASE
  3. CIPRO [Concomitant]
     Indication: FISTULA
     Dosage: 1-2 WEEKS
  4. MERCAPTOPURINE [Concomitant]
     Indication: CROHN'S DISEASE

REACTIONS (2)
  - HEMIPARESIS [None]
  - PAIN [None]
